FAERS Safety Report 4738313-6 (Version None)
Quarter: 2005Q3

REPORT INFORMATION
  Report Type: 
  Country: None (occurrence: None)
  Receive Date: 20050809
  Receipt Date: 20050719
  Transmission Date: 20060218
  Serious: Yes (Other)
  Sender: FDA-Public Use
  Company Number: PHNU2005DE02608

PATIENT
  Sex: Male

DRUGS (3)
  1. CALCIUM ANTAGONIST [Concomitant]
  2. DIURETICS [Concomitant]
  3. LOCOL [Suspect]
     Indication: HYPERLIPIDAEMIA
     Dosage: 40 MG/DAY
     Route: 048

REACTIONS (2)
  - COLITIS [None]
  - DIARRHOEA [None]
